FAERS Safety Report 4436374-5 (Version None)
Quarter: 2004Q3

REPORT INFORMATION
  Report Type: 
  Country: None (occurrence: None)
  Receive Date: 20040830
  Receipt Date: 20031217
  Transmission Date: 20050211
  Serious: Yes (Other)
  Sender: FDA-Public Use
  Company Number: US-BRISTOL-MYERS SQUIBB COMPANY-12459665

PATIENT
  Age: 16 Year
  Sex: Female

DRUGS (4)
  1. ABILIFY [Suspect]
     Indication: SCHIZOPHRENIA
     Route: 048
  2. ABILIFY [Suspect]
     Indication: BIPOLAR DISORDER
     Route: 048
  3. ABILIFY [Suspect]
     Indication: PSYCHOTIC DISORDER
     Route: 048
  4. ATIVAN [Concomitant]

REACTIONS (2)
  - ANAPHYLACTIC REACTION [None]
  - RASH GENERALISED [None]
